FAERS Safety Report 18626287 (Version 2)
Quarter: 2021Q1

REPORT INFORMATION
  Report Type: Spontaneous
  Country: IT (occurrence: IT)
  Receive Date: 20201217
  Receipt Date: 20210223
  Transmission Date: 20210419
  Serious: Yes (Hospitalization)
  Sender: FDA-Public Use
  Company Number: IT-BIOVITRUM-2020IT7444

PATIENT
  Age: 34 Year
  Sex: Female

DRUGS (7)
  1. KINERET [Suspect]
     Active Substance: ANAKINRA
     Indication: BEHCET^S SYNDROME
     Route: 058
     Dates: start: 20200624, end: 20201126
  2. DELTACORTENE 25 MG COMPRESSE [Concomitant]
     Active Substance: PREDNISONE
     Indication: CYTOPHAGIC HISTIOCYTIC PANNICULITIS
     Route: 048
  3. COUMADIN [Concomitant]
     Active Substance: WARFARIN SODIUM
     Indication: CEREBRAL VENOUS THROMBOSIS
     Route: 048
  4. LAMOTRIGINE. [Concomitant]
     Active Substance: LAMOTRIGINE
     Indication: PARTIAL SEIZURES
     Route: 048
  5. NALTREXONE HYDROCHLORIDE. [Concomitant]
     Active Substance: NALTREXONE HYDROCHLORIDE
     Indication: HYPERTENSION
     Route: 048
  6. DIBASE 10.000 U.I./ML GOCCE ORALI, SOLUZIONE [Concomitant]
     Active Substance: CHOLECALCIFEROL
     Indication: VITAMIN D DEFICIENCY
     Route: 048
  7. ESOMEPRAZOLE MAGNESIUM TRIHYDRATE [Concomitant]
     Active Substance: ESOMEPRAZOLE MAGNESIUM
     Indication: GASTRITIS
     Route: 048

REACTIONS (6)
  - Irritability [Recovering/Resolving]
  - Palatoplasty [Recovering/Resolving]
  - Psychomotor hyperactivity [Recovering/Resolving]
  - Insomnia [Recovering/Resolving]
  - Confusional state [Recovering/Resolving]
  - Off label use [Unknown]

NARRATIVE: CASE EVENT DATE: 20200624
